FAERS Safety Report 4831549-5 (Version None)
Quarter: 2005Q4

REPORT INFORMATION
  Report Type: 
  Country: None (occurrence: None)
  Receive Date: 20051118
  Receipt Date: 20051109
  Transmission Date: 20060501
  Serious: Yes (Hospitalization)
  Sender: FDA-Public Use
  Company Number: BE-JNJFOC-20051102676

PATIENT
  Age: 37 Year
  Sex: Male

DRUGS (2)
  1. REMICADE [Suspect]
     Dosage: LAST INFUSION
     Route: 042
  2. REMICADE [Suspect]
     Indication: JUVENILE ARTHRITIS
     Route: 042

REACTIONS (7)
  - ANAEMIA [None]
  - MYALGIA [None]
  - PYREXIA [None]
  - RENAL DISORDER [None]
  - SALMONELLOSIS [None]
  - SEPTIC SHOCK [None]
  - TYPE IV HYPERSENSITIVITY REACTION [None]
